FAERS Safety Report 8078640-0 (Version None)
Quarter: 2012Q1

REPORT INFORMATION
  Report Type: 
  Country: None (occurrence: None)
  Receive Date: 20120124
  Receipt Date: 20120113
  Transmission Date: 20120608
  Serious: Yes (Hospitalization)
  Sender: FDA-Public Use
  Company Number: 2012MA000754

PATIENT
  Age: 72 Year
  Sex: Male

DRUGS (6)
  1. ENOXAPARIN SODIUM [Suspect]
     Indication: KNEE ARTHROPLASTY
     Dosage: 40 MG; QD; SC
     Route: 058
     Dates: start: 20111217, end: 20111226
  2. ACETAMINOPHEN [Concomitant]
  3. NAPROXEN [Suspect]
     Indication: PAIN
     Dosage: 500 MG; BID; PO
     Route: 048
     Dates: start: 20040101, end: 20100103
  4. SENNA [Concomitant]
  5. CODEINE SULFATE [Concomitant]
  6. LACTULOSE [Concomitant]

REACTIONS (1)
  - RECTAL HAEMORRHAGE [None]
